FAERS Safety Report 4979683-3 (Version None)
Quarter: 2006Q2

REPORT INFORMATION
  Report Type: 
  Country: None (occurrence: None)
  Receive Date: 20060418
  Receipt Date: 20060411
  Transmission Date: 20061013
  Serious: Yes (Hospitalization)
  Sender: FDA-Public Use
  Company Number: 200610493BVD

PATIENT
  Age: 69 Year
  Sex: Male
  Weight: 82 kg

DRUGS (1)
  1. LEVITRA [Suspect]
     Indication: PENIS DISORDER
     Dosage: 10 MG, TOTAL DAILY, ORAL
     Route: 048
     Dates: start: 20051201, end: 20060301

REACTIONS (1)
  - LYMPHOCELE [None]
